FAERS Safety Report 16074281 (Version 1)
Quarter: 2019Q1

REPORT INFORMATION
  Report Type: Spontaneous
  Country: DE (occurrence: DE)
  Receive Date: 20190314
  Receipt Date: 20190314
  Transmission Date: 20190418
  Serious: Yes (Other)
  Sender: FDA-Public Use
  Company Number: DE-GUERBET-DE-20180145

PATIENT
  Age: 63 Year
  Sex: Male

DRUGS (4)
  1. DOTAREM [Suspect]
     Active Substance: GADOTERATE MEGLUMINE
     Indication: NUCLEAR MAGNETIC RESONANCE IMAGING
     Dosage: ADMINISTERED 4 WEEKS BEFORE DEATH
     Route: 042
  2. DOTAREM [Suspect]
     Active Substance: GADOTERATE MEGLUMINE
     Dosage: ADMINISTERED 22 WEEKS BEFORE DEATH
     Route: 042
  3. GADOVIST [Suspect]
     Active Substance: GADOBUTROL
     Indication: NUCLEAR MAGNETIC RESONANCE IMAGING
     Dosage: ADMINISTERED 9 WEEKS BEFORE DEATH
     Route: 042
  4. GADOVIST [Suspect]
     Active Substance: GADOBUTROL
     Dosage: ADMINISTERED 25 WEEKS BEFORE DEATH
     Route: 042

REACTIONS (1)
  - Contrast media deposition [Unknown]
